FAERS Safety Report 6700616-3 (Version None)
Quarter: 2010Q2

REPORT INFORMATION
  Report Type: 
  Country: None (occurrence: None)
  Receive Date: 20100426
  Receipt Date: 20100419
  Transmission Date: 20101027
  Serious: Yes (Death, Life-Threatening)
  Sender: FDA-Public Use
  Company Number: UA-JNJFOC-20100405201

PATIENT
  Age: 46 Year
  Sex: Male

DRUGS (2)
  1. DACOGEN [Suspect]
     Indication: CHRONIC MYELOMONOCYTIC LEUKAEMIA
     Dosage: 15 MG/M2, 1 IN 8 HOUR, INTRAVENOUS
     Route: 042
     Dates: start: 20100322, end: 20100326
  2. DICYNONE (ETAMSILATE) [Suspect]
     Indication: THROMBOCYTOPENIA
     Dosage: 20 MG/KG, IN 3 DAY
     Dates: start: 20100301, end: 20100326

REACTIONS (4)
  - BRAIN OEDEMA [None]
  - CEREBRAL HAEMORRHAGE [None]
  - DISEASE PROGRESSION [None]
  - EYE PAIN [None]
